FAERS Safety Report 6986739-2 (Version None)
Quarter: 2010Q3

REPORT INFORMATION
  Report Type: 
  Country: None (occurrence: None)
  Receive Date: 20100915
  Receipt Date: 20090730
  Transmission Date: 20110219
  Serious: No
  Sender: FDA-Public Use
  Company Number: US-WYE-H10410409

PATIENT
  Sex: Female
  Weight: 70.82 kg

DRUGS (6)
  1. PRISTIQ [Suspect]
     Indication: DEPRESSION
     Route: 048
     Dates: start: 20081001
  2. VITAMIN B [Concomitant]
  3. SIMVASTATIN [Concomitant]
  4. RESTORIL [Concomitant]
  5. LORAZEPAM [Concomitant]
  6. ACETYLSALICYLIC ACID [Concomitant]

REACTIONS (3)
  - BLISTER [None]
  - OEDEMA PERIPHERAL [None]
  - PRURITUS [None]
